FAERS Safety Report 13625837 (Version 3)
Quarter: 2017Q4

REPORT INFORMATION
  Report Type: Spontaneous
  Country: US (occurrence: US)
  Receive Date: 20170608
  Receipt Date: 20171127
  Transmission Date: 20180320
  Serious: Yes (Other)
  Sender: FDA-Public Use
  Company Number: US-ASTRAZENECA-2017SE58898

PATIENT
  Age: 15265 Day
  Sex: Male
  Weight: 77 kg

DRUGS (46)
  1. LIPITOR [Concomitant]
     Active Substance: ATORVASTATIN CALCIUM
     Dates: start: 20150125
  2. PERCOCET [Concomitant]
     Active Substance: ACETAMINOPHEN\OXYCODONE HYDROCHLORIDE
     Indication: PAIN
     Dosage: ROXICET, 5 MG-325 MG 1 TABLET TABLET ORAL EVERY FOUR HOURS PRN
     Dates: start: 20150130
  3. LANTUS [Concomitant]
     Active Substance: INSULIN GLARGINE
     Dosage: 100 UNIT/ML SOLUTION 12 SUBCUTANEOUS DAILY RX EVERY
     Dates: start: 20150125
  4. LOVENOX [Concomitant]
     Active Substance: ENOXAPARIN SODIUM
     Route: 058
     Dates: start: 20151016
  5. SHOHL^S MODIFIED [Concomitant]
     Dosage: 300 MG-500 MG/5 ML 10 ML SOLUTION ORAL THREE TIMES A DAY
     Dates: start: 20150130
  6. TYLENOL [Concomitant]
     Active Substance: ACETAMINOPHEN
     Indication: PAIN
     Dosage: 650 MG = 2 TABLET, EVERY FOUR HOURS AS NEEDED
     Route: 048
     Dates: start: 20150125
  7. PLAVIX [Concomitant]
     Active Substance: CLOPIDOGREL BISULFATE
     Dosage: 1.0DF ONCE/SINGLE ADMINISTRATION
     Dates: start: 20150126
  8. SODIUM BICARBONATE. [Suspect]
     Active Substance: SODIUM BICARBONATE
     Indication: GASTRIC PH DECREASED
     Route: 065
     Dates: start: 2013, end: 2016
  9. CATAPRES [Concomitant]
     Active Substance: CLONIDINE HYDROCHLORIDE
     Dates: start: 20150125
  10. ZITHROMAX [Concomitant]
     Active Substance: AZITHROMYCIN DIHYDRATE
     Dates: start: 20151221
  11. ROCEPHIN [Concomitant]
     Active Substance: CEFTRIAXONE SODIUM
     Dates: start: 20151222
  12. ARANESP [Concomitant]
     Active Substance: DARBEPOETIN ALFA
     Route: 042
     Dates: start: 20150311
  13. MORPHINE [Concomitant]
     Active Substance: MORPHINE
     Indication: DYSPNOEA
     Dosage: 4MG=1ML, EVERY FOUR HOURS AS NEEDED
     Route: 042
     Dates: start: 20150126
  14. ASPIRIN. [Concomitant]
     Active Substance: ASPIRIN
     Dosage: 324 MG=4 TABLET
     Route: 048
     Dates: start: 20150126
  15. CEFAZOLIN [Concomitant]
     Active Substance: CEFAZOLIN
     Dates: start: 20150310
  16. NICOTINE. [Concomitant]
     Active Substance: NICOTINE
     Dates: start: 20150126
  17. ZOFRAN [Concomitant]
     Active Substance: ONDANSETRON HYDROCHLORIDE
     Indication: VOMITING
     Dosage: 4 MG = 2 ML, EVERY SIX HOURS AS NEEDED
     Dates: start: 20150125
  18. OMEPRAZOLE. [Suspect]
     Active Substance: OMEPRAZOLE
     Indication: GASTRIC PH DECREASED
     Route: 048
     Dates: start: 2013, end: 2016
  19. OMEPRAZOLE. [Suspect]
     Active Substance: OMEPRAZOLE
     Indication: GASTRIC PH DECREASED
     Dosage: PRILOSEC, 20 MG CAPSULE,DELAYED RELEASE(DR/EC) 1 CAPSULE ORAL TWICE A
     Route: 048
     Dates: start: 20150125
  20. MAGNESIUM OXIDE. [Concomitant]
     Active Substance: MAGNESIUM OXIDE
     Dates: start: 20150313
  21. NEURONTIN [Concomitant]
     Active Substance: GABAPENTIN
     Route: 048
     Dates: start: 20150129
  22. ZOFRAN [Concomitant]
     Active Substance: ONDANSETRON HYDROCHLORIDE
     Indication: NAUSEA
     Dosage: 4 MG = 2 ML, EVERY SIX HOURS AS NEEDED
     Dates: start: 20150125
  23. PANTOPRAZOLE [Suspect]
     Active Substance: PANTOPRAZOLE
     Indication: GASTRIC PH DECREASED
     Dosage: PROTONIX, 40 MG DAILY
     Route: 048
     Dates: start: 20150125
  24. COREG [Concomitant]
     Active Substance: CARVEDILOL
     Dates: start: 20150130
  25. NIFEDIPINE. [Concomitant]
     Active Substance: NIFEDIPINE
     Route: 048
     Dates: start: 20150125
  26. HUMALOG [Concomitant]
     Active Substance: INSULIN LISPRO
     Dosage: THREE TIMES DAILY WIYH MEALS
     Dates: start: 20150130
  27. SHOHL^S MODIFIED [Concomitant]
     Dosage: BICITRA
     Route: 048
     Dates: start: 20150128
  28. HYDROMORPHONE [Concomitant]
     Active Substance: HYDROMORPHONE
     Indication: PAIN
     Route: 042
     Dates: start: 20150310
  29. TOPROL XL [Concomitant]
     Active Substance: METOPROLOL SUCCINATE
     Route: 048
     Dates: start: 20150125
  30. TYLENOL [Concomitant]
     Active Substance: ACETAMINOPHEN
     Indication: HEADACHE
     Dosage: 650 MG = 2 TABLET, EVERY FOUR HOURS AS NEEDED
     Route: 048
     Dates: start: 20150125
  31. BIDIL [Concomitant]
     Active Substance: HYDRALAZINE HYDROCHLORIDE\ISOSORBIDE DINITRATE
     Dosage: TAB-CAP = 1 TAB-CAP, BID
     Route: 048
     Dates: start: 20150125
  32. MORPHINE [Concomitant]
     Active Substance: MORPHINE
     Indication: PAIN
     Dosage: 4MG=1ML, EVERY FOUR HOURS AS NEEDED
     Route: 042
     Dates: start: 20150126
  33. TYLENOL [Concomitant]
     Active Substance: ACETAMINOPHEN
     Indication: PYREXIA
     Dosage: 650 MG = 2 TABLET, EVERY FOUR HOURS AS NEEDED
     Route: 048
     Dates: start: 20150125
  34. PANTOPRAZOLE [Suspect]
     Active Substance: PANTOPRAZOLE
     Indication: GASTRIC PH DECREASED
     Route: 065
     Dates: start: 2013, end: 2016
  35. SODIUM BICARBONATE. [Suspect]
     Active Substance: SODIUM BICARBONATE
     Indication: GASTRIC PH DECREASED
     Route: 042
     Dates: start: 20151221
  36. HYDRALAZINE [Concomitant]
     Active Substance: HYDRALAZINE HYDROCHLORIDE
     Indication: HYPERTENSION
     Dates: start: 20150126
  37. KAYEXALATE [Concomitant]
     Active Substance: SODIUM POLYSTYRENE SULFONATE
     Dosage: 30 G = 120 ML
     Dates: start: 20150125
  38. MIRALAX [Concomitant]
     Active Substance: POLYETHYLENE GLYCOL 3350
     Dates: start: 20150129
  39. NITROSTAT [Concomitant]
     Active Substance: NITROGLYCERIN
     Indication: CHEST PAIN
     Dosage: 0.4 MG = 1 TAB SL AS NEEDED
     Route: 060
     Dates: start: 20150126
  40. OMEPRAZOLE. [Suspect]
     Active Substance: OMEPRAZOLE
     Indication: GASTRIC PH DECREASED
     Route: 048
     Dates: start: 20151221
  41. HYDRALAZINE [Concomitant]
     Active Substance: HYDRALAZINE HYDROCHLORIDE
     Indication: HYPERTENSION
     Dosage: 20 MG = 1 ML EVERY SIX HOURS
     Route: 042
     Dates: start: 20150126
  42. PERCOCET [Concomitant]
     Active Substance: ACETAMINOPHEN\OXYCODONE HYDROCHLORIDE
     Indication: PAIN
     Dates: start: 20151017
  43. HEPARIN SODIUM. [Concomitant]
     Active Substance: HEPARIN SODIUM
     Route: 042
     Dates: start: 20150126
  44. LOPRESSOR [Concomitant]
     Active Substance: METOPROLOL TARTRATE
     Route: 048
     Dates: start: 20150126
  45. VITAMIN D3 [Concomitant]
     Active Substance: CHOLECALCIFEROL
     Dosage: 50,000 UNIT 1 CAPSULE CAPSULE ORAL PER WEEK
     Dates: start: 20150125
  46. ERGOCALCIFEROL. [Concomitant]
     Active Substance: ERGOCALCIFEROL
     Dosage: VITAMIN D2, 50000 UNITS = 1 CAPSULE ONCE EVERY 7 DAYS
     Dates: start: 20150126

REACTIONS (5)
  - Tubulointerstitial nephritis [Unknown]
  - End stage renal disease [Unknown]
  - Acute kidney injury [Unknown]
  - Chronic kidney disease [Unknown]
  - Renal failure [Unknown]

NARRATIVE: CASE EVENT DATE: 20150130
